FAERS Safety Report 24122761 (Version 1)
Quarter: 2024Q3

REPORT INFORMATION
  Report Type: Spontaneous
  Country: CN (occurrence: CN)
  Receive Date: 20240723
  Receipt Date: 20240723
  Transmission Date: 20241017
  Serious: Yes (Other)
  Sender: NOVO NORDISK
  Company Number: CN-NOVOPROD-1256286

PATIENT
  Sex: Female

DRUGS (3)
  1. NOVORAPID [Suspect]
     Active Substance: INSULIN ASPART
     Indication: Type 2 diabetes mellitus
     Dosage: 10-15 U IN THE MORNING, 10-15 U AT NOON AND 10-15 U IN THE EVENING
     Dates: start: 202105
  2. DAPAGLIFLOZIN [Concomitant]
     Active Substance: DAPAGLIFLOZIN
     Indication: Type 2 diabetes mellitus
     Dosage: 1 DF, QD (1 TABLET IN THE MORNING)
  3. ACARBOSE [Concomitant]
     Active Substance: ACARBOSE
     Indication: Type 2 diabetes mellitus
     Dosage: 1 DF, TID (1 TABLET IN THE MORNING, 1 TABLET AT NOON, 1 TABLET IN THE EVENING)

REACTIONS (2)
  - Retinal haemorrhage [Unknown]
  - Retinal detachment [Unknown]
